FAERS Safety Report 7845015-6 (Version None)
Quarter: 2011Q4

REPORT INFORMATION
  Report Type: 
  Country: None (occurrence: None)
  Receive Date: 20111025
  Receipt Date: 20111021
  Transmission Date: 20120403
  Serious: Yes (Other)
  Sender: FDA-Public Use
  Company Number: US-CEPHALON-2011004453

PATIENT
  Sex: Female
  Weight: 80 kg

DRUGS (8)
  1. EXCEDRIN (MIGRAINE) [Concomitant]
     Dates: start: 20100101
  2. ZOLOFT [Concomitant]
     Dates: start: 20090401, end: 20110626
  3. NUVIGIL [Suspect]
     Indication: SYSTEMIC LUPUS ERYTHEMATOSUS
     Route: 048
     Dates: start: 20100301
  4. TOPAMAX [Concomitant]
     Dates: start: 20040101, end: 20110626
  5. PLAQUENIL [Concomitant]
     Dates: start: 20010101
  6. MULTI-VITAMINS [Concomitant]
     Dates: start: 20110711
  7. SALAGEN [Concomitant]
     Dates: start: 20060101
  8. VICODIN [Concomitant]
     Dates: start: 20010101

REACTIONS (3)
  - VAGINAL HAEMORRHAGE [None]
  - UTERINE SPASM [None]
  - MATERNAL EXPOSURE DURING PREGNANCY [None]
